FAERS Safety Report 6546802-7 (Version None)
Quarter: 2010Q1

REPORT INFORMATION
  Report Type: 
  Country: None (occurrence: None)
  Receive Date: 20100122
  Receipt Date: 20100114
  Transmission Date: 20100710
  Serious: Yes (Other)
  Sender: FDA-Public Use
  Company Number: A0840621A

PATIENT
  Age: 60 Year
  Sex: Female

DRUGS (1)
  1. ALLI [Suspect]
     Indication: WEIGHT LOSS DIET
     Route: 048
     Dates: start: 20091230, end: 20100101

REACTIONS (5)
  - ABNORMAL SENSATION IN EYE [None]
  - HYPERSENSITIVITY [None]
  - POSTMENOPAUSAL HAEMORRHAGE [None]
  - PRURITUS [None]
  - RASH [None]
